FAERS Safety Report 24841496 (Version 1)
Quarter: 2025Q1

REPORT INFORMATION
  Report Type: Spontaneous
  Country: US (occurrence: US)
  Receive Date: 20250114
  Receipt Date: 20250114
  Transmission Date: 20250409
  Serious: Yes (Other)
  Sender: PFIZER
  Company Number: US-PFIZER INC-PV202500004156

PATIENT
  Sex: Female

DRUGS (1)
  1. LORBRENA [Suspect]
     Active Substance: LORLATINIB
     Indication: Non-small cell lung cancer
     Dates: start: 20240127

REACTIONS (6)
  - Neuropathy peripheral [Unknown]
  - Blood cholesterol increased [Recovered/Resolved]
  - Fatigue [Recovering/Resolving]
  - Brain fog [Recovering/Resolving]
  - Alopecia [Unknown]
  - Haemangioma [Unknown]
